FAERS Safety Report 6802955-4 (Version None)
Quarter: 2010Q2

REPORT INFORMATION
  Report Type: 
  Country: None (occurrence: None)
  Receive Date: 20100628
  Receipt Date: 20100623
  Transmission Date: 20101027
  Serious: Yes (Death)
  Sender: FDA-Public Use
  Company Number: US-JNJFOC-20090902565

PATIENT
  Sex: Female
  Weight: 72.58 kg

DRUGS (12)
  1. SANDOZ FENTANYL TRANSDERMAL SYSTEM [Suspect]
     Indication: PAIN
  2. SANDOZ FENTANYL TRANSDERMAL SYSTEM [Suspect]
  3. MOTRIN [Concomitant]
     Route: 065
  4. ASPIRIN [Concomitant]
     Route: 065
  5. LASIX [Concomitant]
     Route: 065
  6. NEURONTIN [Concomitant]
     Route: 065
  7. ZOLOFT [Concomitant]
     Route: 065
  8. LOVASTATIN [Concomitant]
     Route: 065
  9. ALPRAZOLAM [Concomitant]
  10. AMITRIPTYLINE [Concomitant]
  11. ALCOHOL [Concomitant]
  12. NORTRIPTYLINE [Concomitant]

REACTIONS (3)
  - INADEQUATE ANALGESIA [None]
  - OVERDOSE [None]
  - WRONG TECHNIQUE IN DRUG USAGE PROCESS [None]
